FAERS Safety Report 4296283-1 (Version None)
Quarter: 2004Q1

REPORT INFORMATION
  Report Type: 
  Country: None (occurrence: None)
  Receive Date: 20040217
  Receipt Date: 20031007
  Transmission Date: 20041129
  Serious: No
  Sender: FDA-Public Use
  Company Number: US-GLAXOSMITHKLINE-A0429254A

PATIENT
  Age: 28 Year
  Sex: Female
  Weight: 90.9 kg

DRUGS (5)
  1. LAMICTAL [Suspect]
     Indication: DEPRESSION
     Dosage: 25MG PER DAY
     Route: 048
     Dates: start: 20030501, end: 20031005
  2. PROZAC [Concomitant]
     Dosage: 60MG PER DAY
     Route: 048
     Dates: end: 20031017
  3. ATIVAN [Concomitant]
     Dosage: 1MG THREE TIMES PER DAY
     Route: 048
     Dates: start: 20030501
  4. WELLBUTRIN SR [Concomitant]
     Route: 048
     Dates: start: 20031014
  5. LEXAPRO [Concomitant]
     Route: 048
     Dates: start: 20031014

REACTIONS (2)
  - RASH [None]
  - SKIN LESION [None]
